FAERS Safety Report 9462225 (Version 1)
Quarter: 2013Q3

REPORT INFORMATION
  Report Type: Spontaneous
  Country: US (occurrence: None)
  Receive Date: 20130813
  Receipt Date: 20130813
  Transmission Date: 20140515
  Serious: Yes (Life-Threatening, Hospitalization)
  Sender: FDA-Public Use
  Company Number: 2013STPI000320

PATIENT
  Age: 55 Year
  Sex: Male
  Weight: 66.4 kg

DRUGS (10)
  1. ABELCET [Suspect]
     Indication: PNEUMONIA CRYPTOCOCCAL
     Route: 042
     Dates: start: 20130722, end: 20130726
  2. ABELCET [Suspect]
     Indication: PNEUMONIA CRYPTOCOCCAL
     Route: 042
     Dates: start: 20130722, end: 20130726
  3. ABELCET [Suspect]
     Indication: FUNGAL SEPSIS
     Route: 042
     Dates: start: 20130722, end: 20130726
  4. CHLORHEXIDINE (CHLORHEXIDINE) [Concomitant]
  5. NIMBEX (CISATRACURIUM BESILATE) [Concomitant]
  6. DIPHENHYDRAMINE HCL (DIPHENHYDRAMINE HYDROCHLORIDE) [Concomitant]
  7. FENTANYL (FENTANYL CITRATE) INJECTION [Concomitant]
  8. PROPOFOL (PROPOFOL) [Concomitant]
  9. MULTIVITAMIN (VITAMINS NOS) [Concomitant]
  10. BACTRIM [Concomitant]

REACTIONS (2)
  - Hypoxia [None]
  - Dyspnoea [None]
